FAERS Safety Report 4528735-0 (Version None)
Quarter: 2004Q4

REPORT INFORMATION
  Report Type: 
  Country: None (occurrence: None)
  Receive Date: 20041216
  Receipt Date: 20041208
  Transmission Date: 20050328
  Serious: Yes (Hospitalization)
  Sender: FDA-Public Use
  Company Number: JP-BRISTOL-MYERS SQUIBB COMPANY-12790606

PATIENT
  Age: 60 Year
  Sex: Male

DRUGS (2)
  1. BRIPLATIN [Suspect]
     Indication: NON-SMALL CELL LUNG CANCER
     Route: 041
     Dates: start: 20040315, end: 20040315
  2. TOPOTECIN [Suspect]
     Indication: NON-SMALL CELL LUNG CANCER
     Route: 041
     Dates: start: 20040315, end: 20040317

REACTIONS (1)
  - INTERSTITIAL LUNG DISEASE [None]
